FAERS Safety Report 7197381-5 (Version None)
Quarter: 2010Q4

REPORT INFORMATION
  Report Type: 
  Country: None (occurrence: None)
  Receive Date: 20101213
  Receipt Date: 20101202
  Transmission Date: 20110411
  Serious: Yes (Other)
  Sender: FDA-Public Use
  Company Number: DKLU1065923

PATIENT
  Age: 8 Year
  Sex: Female

DRUGS (4)
  1. SABRIL [Suspect]
     Indication: EPILEPSY
     Dosage: 500 MG MILLIGRAM(S), 3 IN 1 D, ORAL ; ORAL
     Route: 048
     Dates: start: 20100510, end: 20100501
  2. SABRIL [Suspect]
     Indication: TEMPORAL LOBE EPILEPSY
     Dosage: 500 MG MILLIGRAM(S), 3 IN 1 D, ORAL ; ORAL
     Route: 048
     Dates: start: 20100510, end: 20100501
  3. SABRIL [Suspect]
     Indication: EPILEPSY
     Dosage: 500 MG MILLIGRAM(S), 3 IN 1 D, ORAL ; ORAL
     Route: 048
     Dates: start: 20100420, end: 20100503
  4. SABRIL [Suspect]
     Indication: TEMPORAL LOBE EPILEPSY
     Dosage: 500 MG MILLIGRAM(S), 3 IN 1 D, ORAL ; ORAL
     Route: 048
     Dates: start: 20100420, end: 20100503

REACTIONS (1)
  - LARYNGOMALACIA [None]
